FAERS Safety Report 22165781 (Version 2)
Quarter: 2023Q2

REPORT INFORMATION
  Report Type: Spontaneous
  Country: US (occurrence: US)
  Receive Date: 20230403
  Receipt Date: 20230410
  Transmission Date: 20230722
  Serious: Yes (Life-Threatening, Hospitalization, Other)
  Sender: FDA-Public Use
  Company Number: US-BRISTOL-MYERS SQUIBB COMPANY-2023-046811

PATIENT
  Age: 75 Year
  Sex: Female
  Weight: 96.1 kg

DRUGS (7)
  1. REVLIMID [Suspect]
     Active Substance: LENALIDOMIDE
     Indication: Plasma cell myeloma
     Dosage: FREQUENCY: DAILY FOR 14 DAYS OF CYCLE
     Route: 048
     Dates: start: 20230313, end: 20230321
  2. VELCADE [Concomitant]
     Active Substance: BORTEZOMIB
     Indication: Product used for unknown indication
     Dosage: 2 CYCLES
     Route: 058
  3. DARZALEX [Concomitant]
     Active Substance: DARATUMUMAB
     Indication: Product used for unknown indication
     Dosage: 2 CYCLES
     Route: 058
  4. ASPIRIN [Concomitant]
     Active Substance: ASPIRIN
     Indication: Haemoglobin decreased
     Dosage: DAILY
  5. FOSAMAX [Concomitant]
     Active Substance: ALENDRONATE SODIUM
     Indication: Product used for unknown indication
  6. LISINOPRIL [Concomitant]
     Active Substance: LISINOPRIL
     Indication: Product used for unknown indication
  7. LASIX [Concomitant]
     Active Substance: FUROSEMIDE
     Indication: Oedema peripheral

REACTIONS (9)
  - Acute kidney injury [Unknown]
  - Diarrhoea [Unknown]
  - Cardiac failure congestive [Unknown]
  - Atrial fibrillation [Unknown]
  - Thrombocytopenia [Unknown]
  - Hypotension [Unknown]
  - Off label use [Unknown]
  - Pancytopenia [Unknown]
  - Anaemia [Unknown]

NARRATIVE: CASE EVENT DATE: 20230301
